FAERS Safety Report 8952262 (Version 1)
Quarter: 2012Q4

REPORT INFORMATION
  Report Type: Report from Study
  Country: CH (occurrence: US)
  Receive Date: 20121204
  Receipt Date: 20121204
  Transmission Date: 20130627
  Serious: Yes (Hospitalization, Other)
  Sender: FDA-Public Use
  Company Number: US-009507513-1211USA010449

PATIENT
  Age: 67 Year
  Sex: Male
  Weight: 60.9 kg

DRUGS (5)
  1. TEMODAR [Suspect]
     Indication: GLIOBLASTOMA
     Dosage: daily dose 340 mg
     Route: 048
     Dates: start: 20100514, end: 20100518
  2. BEVACIZUMAB [Suspect]
     Indication: GLIOBLASTOMA
     Dosage: 609 mg, qow
     Route: 042
     Dates: start: 20100514
  3. IRINOTECAN HYDROCHLORIDE [Suspect]
     Indication: GLIOBLASTOMA
     Dosage: 212 mg, qow
     Route: 042
     Dates: start: 20100514
  4. ZANTAC [Concomitant]
     Dosage: 150 mg, bid
  5. DECADRON [Concomitant]
     Dosage: 2 mg, q6h

REACTIONS (3)
  - Atelectasis [Unknown]
  - Pulmonary embolism [Recovered/Resolved]
  - Thrombosis [Recovered/Resolved]
